FAERS Safety Report 7408638-4 (Version None)
Quarter: 2011Q1

REPORT INFORMATION
  Report Type: 
  Country: None (occurrence: None)
  Receive Date: 20110301
  Receipt Date: 20100621
  Transmission Date: 20110831
  Serious: Yes (Disabling, Other)
  Sender: FDA-Public Use
  Company Number: ALA_00966_2010

PATIENT
  Sex: Female
  Weight: 68.0396 kg

DRUGS (11)
  1. GLYBURIDE [Concomitant]
  2. PROTONIX [Concomitant]
  3. BENADRYL [Concomitant]
  4. MUSCLE RELAXANTS [Concomitant]
  5. TAGAMET [Concomitant]
  6. ZOLOFT [Concomitant]
  7. AMBIEN [Concomitant]
  8. CYMBALTA [Concomitant]
  9. REGLAN [Suspect]
     Indication: NAUSEA
     Dosage: DF ORAL
     Route: 048
     Dates: start: 20081001, end: 20100101
  10. REGLAN [Suspect]
     Indication: GASTROOESOPHAGEAL REFLUX DISEASE
     Dosage: DF ORAL
     Route: 048
     Dates: start: 20081001, end: 20100101
  11. PHENERGAN HCL [Concomitant]

REACTIONS (4)
  - EXTRAPYRAMIDAL DISORDER [None]
  - NAUSEA [None]
  - DYSKINESIA [None]
  - DIZZINESS [None]
